FAERS Safety Report 6158408-2 (Version None)
Quarter: 2009Q2

REPORT INFORMATION
  Report Type: 
  Country: None (occurrence: None)
  Receive Date: 20090417
  Receipt Date: 20090414
  Transmission Date: 20091009
  Serious: Yes (Other)
  Sender: FDA-Public Use
  Company Number: US-BRISTOL-MYERS SQUIBB COMPANY-14576367

PATIENT
  Age: 19 Month
  Sex: Male

DRUGS (6)
  1. STAVUDINE [Suspect]
     Indication: HIV INFECTION
  2. LAMIVUDINE [Suspect]
     Indication: HIV INFECTION
  3. RITONAVIR [Suspect]
     Indication: HIV INFECTION
  4. RIFAMPICIN [Suspect]
     Indication: TUBERCULOSIS
  5. ISONIAZID [Suspect]
     Indication: TUBERCULOSIS
  6. PYRAZINAMIDE [Suspect]
     Indication: TUBERCULOSIS

REACTIONS (2)
  - DRUG RESISTANCE [None]
  - VOMITING [None]
